FAERS Safety Report 16266284 (Version 1)
Quarter: 2019Q2

REPORT INFORMATION
  Report Type: Spontaneous
  Country: GB (occurrence: GB)
  Receive Date: 20190502
  Receipt Date: 20190502
  Transmission Date: 20190711
  Serious: Yes (Other)
  Sender: FDA-Public Use
  Company Number: GB-PFIZER INC-2019180170

PATIENT
  Sex: Female

DRUGS (1)
  1. METHOTREXATE SODIUM. [Suspect]
     Active Substance: METHOTREXATE SODIUM
     Indication: ECTOPIC PREGNANCY

REACTIONS (4)
  - Product use in unapproved indication [Unknown]
  - Peritoneal haemorrhage [Unknown]
  - Maternal exposure during pregnancy [Unknown]
  - Pain [Unknown]
